FAERS Safety Report 9156385 (Version 1)
Quarter: 2013Q1

REPORT INFORMATION
  Report Type: Spontaneous
  Country: US (occurrence: None)
  Receive Date: 20130308
  Receipt Date: 20130308
  Transmission Date: 20140127
  Serious: No
  Sender: FDA-Public Use
  Company Number: None

PATIENT
  Age: 54 Year
  Sex: Male
  Weight: 98.88 kg

DRUGS (1)
  1. AXIRON 30MG/1.5 ML LILLY [Suspect]
     Indication: BLOOD TESTOSTERONE DECREASED
     Dosage: 1 APPLICATION DAILY TOP
     Route: 061
     Dates: start: 20130213, end: 20130301

REACTIONS (1)
  - Skin reaction [None]
